FAERS Safety Report 7929133-X (Version None)
Quarter: 2011Q4

REPORT INFORMATION
  Report Type: 
  Country: None (occurrence: None)
  Receive Date: 20111119
  Receipt Date: 20111107
  Transmission Date: 20120403
  Serious: Yes (Other)
  Sender: FDA-Public Use
  Company Number: US-ELI_LILLY_AND_COMPANY-US201010005700

PATIENT
  Sex: Female

DRUGS (15)
  1. VITAMIN B6 [Concomitant]
  2. FORTEO [Suspect]
     Dosage: 20 UG, QD
     Route: 065
  3. TRAMADOL GENERICS [Concomitant]
  4. CELEBREX [Concomitant]
  5. FISH OIL [Concomitant]
  6. CALCIUM CITRATE [Concomitant]
  7. FOSAMAX [Concomitant]
  8. FORTEO [Suspect]
     Indication: OSTEOPOROSIS
     Dosage: 20 UG, DAILY (1/D)
     Route: 065
     Dates: start: 20101020
  9. FORTEO [Suspect]
     Dosage: 20 UG, QD
  10. LIPITOR [Concomitant]
  11. CELEXA [Concomitant]
  12. DIURETICS [Concomitant]
  13. VITAMIN D [Concomitant]
  14. VITAMIN B12 NOS [Concomitant]
  15. COQ-10 [Concomitant]

REACTIONS (7)
  - NERVOUSNESS [None]
  - OVERDOSE [None]
  - BREAST MASS [None]
  - BREAST TENDERNESS [None]
  - BREAST DISCOMFORT [None]
  - BREAST CANCER [None]
  - ANXIETY [None]
